FAERS Safety Report 17710928 (Version 8)
Quarter: 2022Q1

REPORT INFORMATION
  Report Type: Spontaneous
  Country: US (occurrence: US)
  Receive Date: 20200427
  Receipt Date: 20220310
  Transmission Date: 20220423
  Serious: Yes (Other)
  Sender: FDA-Public Use
  Company Number: US-PFIZER INC-2020164021

PATIENT
  Age: 79 Year
  Sex: Female
  Weight: 72.109 kg

DRUGS (1)
  1. TOVIAZ [Suspect]
     Active Substance: FESOTERODINE FUMARATE
     Indication: Hypertonic bladder
     Dosage: 4 MG, 1X/DAY (A DAY)
     Dates: start: 20190101

REACTIONS (6)
  - Mental impairment [Unknown]
  - Drug dependence [Unknown]
  - Visual impairment [Unknown]
  - Bladder disorder [Unknown]
  - Memory impairment [Unknown]
  - Illness [Unknown]
